FAERS Safety Report 23983771 (Version 1)
Quarter: 2024Q2

REPORT INFORMATION
  Report Type: Spontaneous
  Country: DE (occurrence: DE)
  Receive Date: 20240618
  Receipt Date: 20240618
  Transmission Date: 20240716
  Serious: Yes (Hospitalization)
  Sender: FDA-Public Use
  Company Number: DE-CHEPLA-2024007505

PATIENT
  Age: 4 Month
  Sex: Male

DRUGS (10)
  1. VALGANCICLOVIR [Suspect]
     Active Substance: VALGANCICLOVIR
     Indication: Cytomegalovirus infection
     Dosage: VALGANCICLOVIR FOR 35 DAYS
  2. LINEZOLID [Suspect]
     Active Substance: LINEZOLID
  3. MEROPENEM [Suspect]
     Active Substance: MEROPENEM
  4. SULFAMETHOXAZOLE\TRIMETHOPRIM [Suspect]
     Active Substance: SULFAMETHOXAZOLE\TRIMETHOPRIM
  5. CASPOFUNGIN [Suspect]
     Active Substance: CASPOFUNGIN
     Indication: Antifungal treatment
     Dosage: CASPOFUNGIN BEING EXCHANGED FOR LIPOSOMAL AMPHOTERICIN B
  6. AMPHOTERICIN B [Suspect]
     Active Substance: AMPHOTERICIN B
     Indication: Antifungal treatment
     Dosage: DAILY DOSE: 3 MILLIGRAM/KG
  7. AMPHOTERICIN B [Suspect]
     Active Substance: AMPHOTERICIN B
     Indication: Antifungal treatment
     Dosage: 5MG/KG DAILY?DAILY DOSE: 5 MILLIGRAM/KG
  8. VORICONAZOLE [Suspect]
     Active Substance: VORICONAZOLE
     Indication: Antifungal treatment
  9. TACROLIMUS [Suspect]
     Active Substance: TACROLIMUS
     Indication: Immunosuppression
  10. BASILIXIMAB [Suspect]
     Active Substance: BASILIXIMAB
     Indication: Immunosuppression
     Dosage: ONE DOSE OF BASILIXIMAB BUT DISCONTINUED (D37)

REACTIONS (16)
  - Septic shock [Unknown]
  - Enterococcal infection [Unknown]
  - Klebsiella sepsis [Unknown]
  - Fungal infection [Unknown]
  - Hypotension [Unknown]
  - Hepatomegaly [Unknown]
  - Aspergillus infection [Unknown]
  - Liver transplant [Unknown]
  - Necrosis [Unknown]
  - Disseminated intravascular coagulation [Unknown]
  - Aspergillus infection [Unknown]
  - Intestinal haemorrhage [Unknown]
  - Fungal infection [Unknown]
  - Abscess [Unknown]
  - Immunoglobulins decreased [Unknown]
  - Off label use [Unknown]
